FAERS Safety Report 10592548 (Version 1)
Quarter: 2014Q4

REPORT INFORMATION
  Report Type: Spontaneous
  Country: US (occurrence: US)
  Receive Date: 20141119
  Receipt Date: 20141119
  Transmission Date: 20150529
  Serious: No
  Sender: FDA-Public Use
  Company Number: US-PFIZER INC-2014315363

PATIENT
  Age: 46 Year
  Sex: Female
  Weight: 77.55 kg

DRUGS (2)
  1. GABAPENTIN. [Suspect]
     Active Substance: GABAPENTIN
     Indication: PARAESTHESIA
     Dosage: 600 MG, 3X/DAY
     Dates: start: 20140922, end: 20140924
  2. GABAPENTIN. [Suspect]
     Active Substance: GABAPENTIN
     Indication: NEURALGIA

REACTIONS (2)
  - Drug ineffective [Unknown]
  - Hypersomnia [Unknown]
